FAERS Safety Report 6323582-1 (Version None)
Quarter: 2009Q3

REPORT INFORMATION
  Report Type: 
  Country: None (occurrence: None)
  Receive Date: 20090824
  Receipt Date: 20090610
  Transmission Date: 20100115
  Serious: No
  Sender: FDA-Public Use
  Company Number: US-ABBOTT-09P-163-0579034-00

PATIENT
  Sex: Female
  Weight: 95.794 kg

DRUGS (4)
  1. NIASPAN [Suspect]
     Indication: HIGH DENSITY LIPOPROTEIN INCREASED
     Route: 048
     Dates: start: 20090605, end: 20090606
  2. ASPIRIN [Concomitant]
     Indication: DRUG USE FOR UNKNOWN INDICATION
     Route: 048
  3. MELOXICAM [Concomitant]
     Indication: ARTHROPATHY
     Route: 048
  4. MELOXICAM [Concomitant]
     Indication: BACK DISORDER

REACTIONS (8)
  - DYSPNOEA [None]
  - ERYTHEMA [None]
  - HYPERHIDROSIS [None]
  - LOSS OF CONSCIOUSNESS [None]
  - SKIN BURNING SENSATION [None]
  - SOMNOLENCE [None]
  - THROAT TIGHTNESS [None]
  - URINARY INCONTINENCE [None]
